FAERS Safety Report 23168144 (Version 1)
Quarter: 2023Q4

REPORT INFORMATION
  Report Type: Spontaneous
  Country: CN (occurrence: CN)
  Receive Date: 20231109
  Receipt Date: 20231109
  Transmission Date: 20240110
  Serious: Yes (Other)
  Sender: FDA-Public Use
  Company Number: None

PATIENT
  Age: 64 Year
  Sex: Female
  Weight: 70 kg

DRUGS (2)
  1. MANNITOL [Suspect]
     Active Substance: MANNITOL
     Indication: Back pain
     Dosage: 125 ML, ONCE DAILY (DOSAGE FORM: INJECTION)
     Route: 041
     Dates: start: 20231102, end: 20231102
  2. DEXAMETHASONE [Suspect]
     Active Substance: DEXAMETHASONE
     Dosage: 5 MG, ONCE DAILY
     Route: 042
     Dates: start: 20231102, end: 20231102

REACTIONS (5)
  - Hypoaesthesia oral [Recovering/Resolving]
  - Sneezing [Recovering/Resolving]
  - Ocular hyperaemia [Recovering/Resolving]
  - Eye swelling [Recovering/Resolving]
  - Dyspnoea [Recovering/Resolving]

NARRATIVE: CASE EVENT DATE: 20231102
